FAERS Safety Report 24355121 (Version 1)
Quarter: 2024Q3

REPORT INFORMATION
  Report Type: Spontaneous
  Country: JP (occurrence: JP)
  Receive Date: 20240923
  Receipt Date: 20240923
  Transmission Date: 20241017
  Serious: Yes (Life-Threatening, Hospitalization, Other)
  Sender: VALIDUS
  Company Number: JP-VALIDUS PHARMACEUTICALS LLC-JP-VDP-2024-019400

PATIENT

DRUGS (3)
  1. LASIX [Suspect]
     Active Substance: FUROSEMIDE
     Indication: Cardiac failure
     Dosage: 20 MG, QD
     Route: 041
  2. DIGOXIN [Suspect]
     Active Substance: DIGOXIN
     Indication: Respiratory tract operation
     Dosage: 0.25 MG, QD LOW-DOSE
     Route: 042
  3. NOREPINEPHRINE [Suspect]
     Active Substance: NOREPINEPHRINE\NOREPINEPHRINE BITARTRATE
     Indication: Hypotension
     Dosage: 0.1 MICROGRAM/KILOGRAM, QMN
     Route: 065

REACTIONS (4)
  - Left ventricle outflow tract obstruction [Recovering/Resolving]
  - Mitral valve incompetence [Recovering/Resolving]
  - Cardiogenic shock [Recovering/Resolving]
  - Atrial fibrillation [Recovering/Resolving]
